FAERS Safety Report 9364717 (Version 1)
Quarter: 2013Q2

REPORT INFORMATION
  Report Type: Other
  Country: GB (occurrence: GB)
  Receive Date: 20130624
  Receipt Date: 20130624
  Transmission Date: 20140414
  Serious: Yes (Other)
  Sender: FDA-Public Use
  Company Number: GB-ACTAVIS-2013-11202

PATIENT
  Age: 26 Year
  Sex: 0

DRUGS (30)
  1. TRAMADOL HYDROCHLORIDE (UNKNOWN) [Suspect]
     Indication: PAIN
     Route: 065
  2. TRAMADOL HYDROCHLORIDE (UNKNOWN) [Suspect]
     Indication: MYALGIA
  3. TRAMADOL HYDROCHLORIDE (UNKNOWN) [Suspect]
     Indication: OSTEOPOROSIS
  4. TRAMADOL HYDROCHLORIDE (UNKNOWN) [Suspect]
     Indication: OSTEOARTHRITIS
  5. TRAMADOL HYDROCHLORIDE (UNKNOWN) [Suspect]
     Indication: RHEUMATOID ARTHRITIS
  6. TRAMADOL HYDROCHLORIDE (UNKNOWN) [Suspect]
     Indication: HYPERMOBILITY SYNDROME
  7. NAPROXEN SODIUM (UNKNOWN) [Suspect]
     Indication: PAIN
     Dosage: UNK
     Route: 065
  8. NAPROXEN SODIUM (UNKNOWN) [Suspect]
     Indication: MYALGIA
  9. NAPROXEN SODIUM (UNKNOWN) [Suspect]
     Indication: OSTEOPOROSIS
  10. NAPROXEN SODIUM (UNKNOWN) [Suspect]
     Indication: OSTEOARTHRITIS
  11. NAPROXEN SODIUM (UNKNOWN) [Suspect]
     Indication: RHEUMATOID ARTHRITIS
  12. NAPROXEN SODIUM (UNKNOWN) [Suspect]
     Indication: HYPERMOBILITY SYNDROME
  13. PARACETAMOL-DIHYDROCODEINE (UNKNOWN) [Suspect]
     Indication: PAIN
     Route: 065
  14. PARACETAMOL-DIHYDROCODEINE (UNKNOWN) [Suspect]
     Indication: MYALGIA
  15. PARACETAMOL-DIHYDROCODEINE (UNKNOWN) [Suspect]
     Indication: OSTEOPOROSIS
  16. PARACETAMOL-DIHYDROCODEINE (UNKNOWN) [Suspect]
     Indication: OSTEOARTHRITIS
  17. PARACETAMOL-DIHYDROCODEINE (UNKNOWN) [Suspect]
     Indication: RHEUMATOID ARTHRITIS
  18. PARACETAMOL-DIHYDROCODEINE (UNKNOWN) [Suspect]
     Indication: HYPERMOBILITY SYNDROME
  19. DICLOFENAC SODIUM (UNKNOWN) [Suspect]
     Indication: PAIN
     Route: 065
  20. DICLOFENAC SODIUM (UNKNOWN) [Suspect]
     Indication: MYALGIA
  21. DICLOFENAC SODIUM (UNKNOWN) [Suspect]
     Indication: OSTEOPOROSIS
  22. DICLOFENAC SODIUM (UNKNOWN) [Suspect]
     Indication: OSTEOARTHRITIS
  23. DICLOFENAC SODIUM (UNKNOWN) [Suspect]
     Indication: RHEUMATOID ARTHRITIS
  24. DICLOFENAC SODIUM (UNKNOWN) [Suspect]
     Indication: HYPERMOBILITY SYNDROME
  25. LEFLUNOMIDE [Suspect]
     Indication: PAIN
     Route: 065
  26. LEFLUNOMIDE [Suspect]
     Indication: MYALGIA
  27. LEFLUNOMIDE [Suspect]
     Indication: OSTEOPOROSIS
  28. LEFLUNOMIDE [Suspect]
     Indication: OSTEOARTHRITIS
  29. LEFLUNOMIDE [Suspect]
     Indication: RHEUMATOID ARTHRITIS
  30. LEFLUNOMIDE [Suspect]
     Indication: HYPERMOBILITY SYNDROME

REACTIONS (2)
  - Suicidal ideation [Unknown]
  - Drug ineffective [Unknown]
